FAERS Safety Report 6410551-6 (Version None)
Quarter: 2009Q4

REPORT INFORMATION
  Report Type: 
  Country: None (occurrence: None)
  Receive Date: 20091022
  Receipt Date: 20091009
  Transmission Date: 20100525
  Serious: Yes (Other)
  Sender: FDA-Public Use
  Company Number: CA-GENENTECH-292550

PATIENT
  Sex: Female

DRUGS (1)
  1. XOLAIR [Suspect]
     Indication: DERMATITIS ALLERGIC
     Dosage: 375 MG, Q2W
     Route: 058
     Dates: start: 20090703

REACTIONS (1)
  - PALPITATIONS [None]
